FAERS Safety Report 10155251 (Version 1)
Quarter: 2014Q2

REPORT INFORMATION
  Report Type: Spontaneous
  Country: US (occurrence: None)
  Receive Date: 20140505
  Receipt Date: 20140505
  Transmission Date: 20141212
  Serious: No
  Sender: FDA-Public Use
  Company Number: None

PATIENT
  Age: 10 Year
  Sex: Male

DRUGS (1)
  1. LEVOTHYROXINE 50 MCG [Suspect]
     Indication: HYPOTHYROIDISM
     Route: 048
     Dates: start: 20140214, end: 20140303

REACTIONS (1)
  - Hypersensitivity [None]
